FAERS Safety Report 8881335 (Version 2)
Quarter: 2013Q2

REPORT INFORMATION
  Report Type: Spontaneous
  Country: US (occurrence: None)
  Receive Date: 20120426
  Receipt Date: 20120703
  Transmission Date: 20140414
  Serious: Yes (Other)
  Sender: FDA-Public Use
  Company Number: PHEH2012US003304

PATIENT
  Age: 31 Year
  Sex: Female
  Weight: 115.6 kg

DRUGS (4)
  1. GILENYA [Suspect]
     Indication: MULTIPLE SCLEROSIS
     Route: 048
     Dates: start: 20111114, end: 20111209
  2. ZANTAC [Concomitant]
  3. VITAMIN D /00318501/ (COLECALCIFEROL) [Concomitant]
  4. TYLENOL (PARACETAMOL) TABLET [Concomitant]

REACTIONS (5)
  - Dizziness [None]
  - Fatigue [None]
  - Burning sensation [None]
  - Blood pressure decreased [None]
  - Heart rate decreased [None]
